FAERS Safety Report 7713793-2 (Version None)
Quarter: 2011Q3

REPORT INFORMATION
  Report Type: 
  Country: None (occurrence: None)
  Receive Date: 20110826
  Receipt Date: 20110822
  Transmission Date: 20111222
  Serious: Yes (Other)
  Sender: FDA-Public Use
  Company Number: US-PFIZER INC-2011158387

PATIENT
  Sex: Female

DRUGS (3)
  1. NABUMETONE [Concomitant]
     Indication: ARTHRITIS
     Dosage: UNK
     Dates: start: 20030101
  2. LORAZEPAM [Concomitant]
     Indication: ANXIETY
     Dosage: UNK
     Dates: start: 20000101
  3. CHANTIX [Suspect]
     Indication: SMOKING CESSATION THERAPY
     Dosage: UNK
     Dates: start: 20070801, end: 20080101

REACTIONS (7)
  - MENTAL DISORDER [None]
  - AGITATION [None]
  - ANXIETY [None]
  - SUICIDE ATTEMPT [None]
  - ANGER [None]
  - DEPRESSION [None]
  - AGGRESSION [None]
